FAERS Safety Report 25525872 (Version 1)
Quarter: 2025Q3

REPORT INFORMATION
  Report Type: Report from Study
  Country: CN (occurrence: CN)
  Receive Date: 20250707
  Receipt Date: 20250707
  Transmission Date: 20251020
  Serious: Yes (Death, Other)
  Sender: SANDOZ
  Company Number: CN-SANDOZ-SDZ2025CN047459

PATIENT
  Sex: Male

DRUGS (1)
  1. ZOLEDRONIC ACID [Suspect]
     Active Substance: ZOLEDRONIC ACID
     Indication: Osteoporosis
     Route: 041

REACTIONS (1)
  - Death [Fatal]
